FAERS Safety Report 6302347-0 (Version None)
Quarter: 2009Q3

REPORT INFORMATION
  Report Type: 
  Country: None (occurrence: None)
  Receive Date: 20090810
  Receipt Date: 20080410
  Transmission Date: 20100115
  Serious: Yes (Death)
  Sender: FDA-Public Use
  Company Number: GB-B.I. PHARMACEUTICALS,INC./RIDGEFIELD-2008-UK-01054UK

PATIENT
  Age: 63 Year

DRUGS (9)
  1. TIOTROPIUM (00015/0190/A) [Suspect]
     Indication: CHRONIC OBSTRUCTIVE PULMONARY DISEASE
     Route: 055
     Dates: start: 20080320
  2. FLUOXETINE [Concomitant]
     Route: 048
  3. HYDROXYCHLOROQUINE SULFATE [Concomitant]
     Dosage: 400 MG
     Route: 048
  4. IPRATROPIUM BROMIDE [Concomitant]
     Dosage: 800 MG
     Route: 055
  5. SALAZOPYRIN [Concomitant]
     Dosage: 2 G
     Route: 048
  6. SALBUTAMOL [Concomitant]
  7. SENNA [Concomitant]
     Route: 048
  8. SERETIDE [Concomitant]
     Dosage: 1600 MCG
     Route: 055
  9. TRAMADOL [Concomitant]
     Dosage: 400 MG

REACTIONS (2)
  - ARRHYTHMIA [None]
  - EMPHYSEMA [None]
